FAERS Safety Report 5978949-8 (Version None)
Quarter: 2008Q4

REPORT INFORMATION
  Report Type: 
  Country: None (occurrence: None)
  Receive Date: 20081204
  Receipt Date: 20080721
  Transmission Date: 20090506
  Serious: No
  Sender: FDA-Public Use
  Company Number: US-ABBOTT-07P-163-0430617-00

PATIENT
  Age: 1 Week
  Sex: Male

DRUGS (1)
  1. TRICOR [Suspect]
     Indication: DRUG USE FOR UNKNOWN INDICATION
     Dates: start: 20071002, end: 20071101

REACTIONS (2)
  - DRUG EXPOSURE DURING PREGNANCY [None]
  - URINARY TRACT DISORDER [None]
